FAERS Safety Report 5924885-2 (Version None)
Quarter: 2008Q4

REPORT INFORMATION
  Report Type: 
  Country: None (occurrence: None)
  Receive Date: 20081021
  Receipt Date: 20080926
  Transmission Date: 20090506
  Serious: No
  Sender: FDA-Public Use
  Company Number: US-JNJFOC-20080906305

PATIENT
  Sex: Male
  Weight: 79.47 kg

DRUGS (2)
  1. INVEGA [Suspect]
     Indication: PSYCHOTIC DISORDER
     Route: 048
  2. INVEGA [Suspect]
     Indication: AFFECTIVE DISORDER
     Route: 048

REACTIONS (2)
  - BACK PAIN [None]
  - DRUG ADMINISTRATION ERROR [None]
